FAERS Safety Report 6540018-6 (Version None)
Quarter: 2010Q1

REPORT INFORMATION
  Report Type: 
  Country: None (occurrence: None)
  Receive Date: 20100115
  Receipt Date: 20100112
  Transmission Date: 20100710
  Serious: Yes (Death, Other)
  Sender: FDA-Public Use
  Company Number: PHHY2010GB01485

PATIENT
  Sex: Male

DRUGS (3)
  1. CLOZARIL [Suspect]
     Indication: SCHIZOPHRENIA
     Dosage: UNK
     Dates: start: 20040128
  2. ASPIRIN [Concomitant]
  3. PROZAC [Concomitant]

REACTIONS (8)
  - BLOOD IMMUNOGLOBULIN M DECREASED [None]
  - BRONCHIECTASIS [None]
  - CHEST DISCOMFORT [None]
  - FIBROSIS [None]
  - GENERAL PHYSICAL CONDITION ABNORMAL [None]
  - IMMUNODEFICIENCY [None]
  - LOBAR PNEUMONIA [None]
  - VIRAL INFECTION [None]
